FAERS Safety Report 9643860 (Version 1)
Quarter: 2013Q4

REPORT INFORMATION
  Report Type: Spontaneous
  Country: US (occurrence: US)
  Receive Date: 20131024
  Receipt Date: 20131024
  Transmission Date: 20140711
  Serious: No
  Sender: FDA-Public Use
  Company Number: US-ASTRAZENECA-2013SE75961

PATIENT
  Age: 51 Year
  Sex: Female

DRUGS (4)
  1. CRESTOR [Suspect]
     Indication: HYPERLIPIDAEMIA
     Route: 048
     Dates: start: 20131007, end: 20131009
  2. INSULIN [Concomitant]
     Indication: DIABETES MELLITUS
     Dosage: UNKNOWN UNK
  3. NOVALOG [Concomitant]
     Indication: DIABETES MELLITUS
     Dosage: UNKNOWN UNK
  4. VICTOZA [Concomitant]
     Indication: DIABETES MELLITUS
     Dosage: UNKNOWN UNK

REACTIONS (2)
  - Local swelling [Unknown]
  - Swelling face [Unknown]
